FAERS Safety Report 22202296 (Version 10)
Quarter: 2025Q3

REPORT INFORMATION
  Report Type: Spontaneous
  Country: US (occurrence: US)
  Receive Date: 20230412
  Receipt Date: 20250808
  Transmission Date: 20251021
  Serious: No
  Sender: AMGEN
  Company Number: US-AMGEN-USASP2023062723

PATIENT
  Sex: Female

DRUGS (33)
  1. OTEZLA [Suspect]
     Active Substance: APREMILAST
     Indication: Psoriasis
     Dosage: 30 MILLIGRAM, BID
     Route: 048
     Dates: start: 20201229
  2. OTEZLA [Suspect]
     Active Substance: APREMILAST
     Indication: Movement disorder
  3. OTEZLA [Suspect]
     Active Substance: APREMILAST
     Indication: Psoriasis
  4. PREDNISONE [Suspect]
     Active Substance: PREDNISONE
     Indication: Product used for unknown indication
     Route: 065
  5. PERCOCET [Concomitant]
     Active Substance: ACETAMINOPHEN\OXYCODONE HYDROCHLORIDE
     Route: 065
  6. TREMFYA [Concomitant]
     Active Substance: GUSELKUMAB
     Route: 065
  7. INGREZZA [Concomitant]
     Active Substance: VALBENAZINE DITOSYLATE
  8. ARIPIPRAZOLE [Concomitant]
     Active Substance: ARIPIPRAZOLE
  9. ARIPIPRAZOLE [Concomitant]
     Active Substance: ARIPIPRAZOLE
  10. ARIPIPRAZOLE [Concomitant]
     Active Substance: ARIPIPRAZOLE
  11. BUPROPION [Concomitant]
     Active Substance: BUPROPION
  12. BUPROPION [Concomitant]
     Active Substance: BUPROPION
  13. DIAZEPAM [Concomitant]
     Active Substance: DIAZEPAM
  14. DULOXETINE [Concomitant]
     Active Substance: DULOXETINE
  15. DULOXETINE [Concomitant]
     Active Substance: DULOXETINE
  16. ELIQUIS [Concomitant]
     Active Substance: APIXABAN
  17. EPINEPHRINE [Concomitant]
     Active Substance: EPINEPHRINE
  18. FUROSEMIDE [Concomitant]
     Active Substance: FUROSEMIDE
  19. JANUVIA [Concomitant]
     Active Substance: SITAGLIPTIN PHOSPHATE
  20. LEVOTHYROXINE [Concomitant]
     Active Substance: LEVOTHYROXINE
  21. MELOXICAM [Concomitant]
     Active Substance: MELOXICAM
  22. MOUNJARO [Concomitant]
     Active Substance: TIRZEPATIDE
  23. MOUNJARO [Concomitant]
     Active Substance: TIRZEPATIDE
  24. MOUNJARO [Concomitant]
     Active Substance: TIRZEPATIDE
  25. MOUNJARO [Concomitant]
     Active Substance: TIRZEPATIDE
  26. OXYBUTYNIN [Concomitant]
     Active Substance: OXYBUTYNIN
  27. PRAZOSIN [Concomitant]
     Active Substance: PRAZOSIN
  28. PROPRANOLOL [Concomitant]
     Active Substance: PROPRANOLOL HYDROCHLORIDE
  29. PROPRANOLOL [Concomitant]
     Active Substance: PROPRANOLOL HYDROCHLORIDE
  30. RABEPRAZOLE [Concomitant]
     Active Substance: RABEPRAZOLE
  31. SPIRONOLACTONE [Concomitant]
     Active Substance: SPIRONOLACTONE
  32. TOPIRAMATE [Concomitant]
     Active Substance: TOPIRAMATE
  33. Trihexyphen [Concomitant]

REACTIONS (8)
  - Therapy non-responder [Unknown]
  - Rash [Unknown]
  - COVID-19 [Not Recovered/Not Resolved]
  - Infection [Unknown]
  - Illness [Unknown]
  - Fatigue [Unknown]
  - Discomfort [Unknown]
  - Product dose omission issue [Unknown]
